FAERS Safety Report 14193458 (Version 1)
Quarter: 2017Q4

REPORT INFORMATION
  Report Type: Spontaneous
  Country: US (occurrence: US)
  Receive Date: 20171115
  Receipt Date: 20171115
  Transmission Date: 20180321
  Serious: Yes (Other)
  Sender: FDA-Public Use
  Company Number: US-ALEXION-A201712652

PATIENT
  Sex: Female

DRUGS (3)
  1. SOLIRIS [Suspect]
     Active Substance: ECULIZUMAB
     Indication: OFF LABEL USE
  2. SOLIRIS [Suspect]
     Active Substance: ECULIZUMAB
     Indication: MYELODYSPLASTIC SYNDROME
     Dosage: UNK, Q2W
     Route: 065
  3. SOLIRIS [Suspect]
     Active Substance: ECULIZUMAB
     Indication: CYTOGENETIC ABNORMALITY

REACTIONS (6)
  - Ascites [Unknown]
  - Off label use [Unknown]
  - Weight decreased [Unknown]
  - Fluid overload [Unknown]
  - Hypertension [Unknown]
  - Decreased appetite [Unknown]
